FAERS Safety Report 11061017 (Version 1)
Quarter: 2015Q2

REPORT INFORMATION
  Report Type: Report from Study
  Country: CA (occurrence: CA)
  Receive Date: 20150424
  Receipt Date: 20150424
  Transmission Date: 20150821
  Serious: Yes (Death)
  Sender: FDA-Public Use
  Company Number: CA-AMGEN-CANSL2015039037

PATIENT
  Age: 59 Year
  Sex: Male

DRUGS (2)
  1. XGEVA [Suspect]
     Active Substance: DENOSUMAB
     Indication: LUNG NEOPLASM MALIGNANT
     Dosage: 120MG/1.7ML, UNK
     Route: 065
     Dates: start: 20141205
  2. NEULASTA [Suspect]
     Active Substance: PEGFILGRASTIM
     Indication: LUNG NEOPLASM MALIGNANT
     Dosage: 10 MG/1.0ML, UNK
     Route: 065
     Dates: start: 20141217

REACTIONS (1)
  - Death [Fatal]

NARRATIVE: CASE EVENT DATE: 20150415
